FAERS Safety Report 10637676 (Version 1)
Quarter: 2014Q4

REPORT INFORMATION
  Report Type: Spontaneous
  Country: US (occurrence: None)
  Receive Date: 20141205
  Receipt Date: 20141205
  Transmission Date: 20150529
  Serious: No
  Sender: FDA-Public Use
  Company Number: None

PATIENT
  Age: 24 Month
  Sex: Male
  Weight: 12.25 kg

DRUGS (2)
  1. SINGULAIR [Suspect]
     Active Substance: MONTELUKAST SODIUM
     Indication: CHEST DISCOMFORT
     Dates: start: 20141118, end: 20141121
  2. SINGULAIR [Suspect]
     Active Substance: MONTELUKAST SODIUM
     Indication: COUGH
     Dates: start: 20141118, end: 20141121

REACTIONS (5)
  - Conversion disorder [None]
  - Pain [None]
  - Insomnia [None]
  - Irritability [None]
  - Abnormal behaviour [None]

NARRATIVE: CASE EVENT DATE: 20141121
